FAERS Safety Report 18718726 (Version 1)
Quarter: 2021Q1

REPORT INFORMATION
  Report Type: Spontaneous
  Country: HR (occurrence: HR)
  Receive Date: 20210108
  Receipt Date: 20210108
  Transmission Date: 20210419
  Serious: Yes (Other)
  Sender: FDA-Public Use
  Company Number: NVSC2020HR243632

PATIENT
  Age: 58 Year
  Sex: Male

DRUGS (5)
  1. SUNITINIB [Suspect]
     Active Substance: SUNITINIB
     Indication: METASTASES TO LUNG
     Dosage: 37.5 MILLIGRAM PER 7 DAYS, 4/WEEKS
     Route: 065
  2. SUNITINIB [Suspect]
     Active Substance: SUNITINIB
     Dosage: 50 MILLIGRAM, 4/WEEKS
     Route: 065
  3. PAZOPANIB [Suspect]
     Active Substance: PAZOPANIB
     Indication: RENAL CANCER
     Dosage: 400 AND 600 MG ALTERNATE PER DAY
     Route: 065
     Dates: start: 201610, end: 201908
  4. SUNITINIB [Suspect]
     Active Substance: SUNITINIB
     Dosage: 50 MILLIGRAM, UNK
     Route: 065
  5. PAZOPANIB [Suspect]
     Active Substance: PAZOPANIB
     Dosage: 600 MG, QD
     Route: 065

REACTIONS (4)
  - Cardiotoxicity [Recovering/Resolving]
  - Clear cell renal cell carcinoma [Recovering/Resolving]
  - Metastases to bone [Unknown]
  - Malignant neoplasm progression [Recovering/Resolving]
